FAERS Safety Report 5573112-7 (Version None)
Quarter: 2007Q4

REPORT INFORMATION
  Report Type: 
  Country: None (occurrence: None)
  Receive Date: 20071220
  Receipt Date: 20071220
  Transmission Date: 20080405
  Serious: Yes (Hospitalization)
  Sender: FDA-Public Use
  Company Number: None

PATIENT
  Age: 59 Year
  Sex: Male

DRUGS (2)
  1. LISINOPRIL [Suspect]
     Indication: HYPERTENSION
     Dosage: 20MG  EVERY DAY  PO
     Route: 048
     Dates: start: 20070529, end: 20070916
  2. NAPROXEN [Suspect]

REACTIONS (3)
  - ANGIOEDEMA [None]
  - ARTHRALGIA [None]
  - PARAESTHESIA ORAL [None]
